FAERS Safety Report 13765346 (Version 1)
Quarter: 2017Q3

REPORT INFORMATION
  Report Type: Spontaneous
  Country: FR (occurrence: FR)
  Receive Date: 20170718
  Receipt Date: 20170718
  Transmission Date: 20171127
  Serious: Yes (Other)
  Sender: FDA-Public Use
  Company Number: FR-BAYER-2017-134677

PATIENT
  Age: 35 Year
  Sex: Female

DRUGS (1)
  1. MIRENA [Suspect]
     Active Substance: LEVONORGESTREL
     Indication: CONTRACEPTION
     Dosage: 20 MCG/24HR, CONT
     Route: 015
     Dates: start: 20151127, end: 20170529

REACTIONS (13)
  - Headache [Unknown]
  - Sciatica [Unknown]
  - Neuralgia [Unknown]
  - Back pain [Unknown]
  - Abdominal distension [Unknown]
  - Tachycardia [Unknown]
  - Arthralgia [Unknown]
  - Vertigo [Unknown]
  - Fatigue [Unknown]
  - Gingivitis [Unknown]
  - Pruritus [Unknown]
  - Loss of libido [Unknown]
  - Nervousness [Unknown]

NARRATIVE: CASE EVENT DATE: 20160220
